FAERS Safety Report 8367965-7 (Version None)
Quarter: 2012Q2

REPORT INFORMATION
  Report Type: 
  Country: None (occurrence: None)
  Receive Date: 20120517
  Receipt Date: 20120511
  Transmission Date: 20120825
  Serious: Yes (Hospitalization, Other)
  Sender: FDA-Public Use
  Company Number: US-ROCHE-485889

PATIENT
  Sex: Female

DRUGS (13)
  1. ACCUTANE [Suspect]
     Route: 048
     Dates: start: 19981001, end: 19990101
  2. ORTHO TRI-CYCLEN [Concomitant]
     Indication: CONTRACEPTION
  3. DERMATOLOGIC AGENT NOS [Concomitant]
  4. ACCUTANE [Suspect]
     Route: 048
     Dates: start: 20000701, end: 20001001
  5. NAPROXEN (ALEVE) [Concomitant]
  6. ORTHO-NOVUM 7/7/7-21 [Concomitant]
     Indication: CONTRACEPTION
     Dates: start: 19930101, end: 19980101
  7. VITAMIN B COMPLEX CAP [Concomitant]
  8. IBUPROFEN (ADVIL) [Concomitant]
  9. MULTI-VITAMIN [Concomitant]
     Dosage: DOSAGE REPROTED AS QD.
  10. ACETAMINOPHEN [Concomitant]
     Dosage: REPORTED AS ACETAMINOPHEN (TYLENOL).
  11. ASCORBIC ACID [Concomitant]
  12. ACCUTANE [Suspect]
     Indication: ACNE CYSTIC
     Route: 048
     Dates: start: 19941111, end: 19950120
  13. ACCUTANE [Suspect]
     Dosage: DOSE: 40 MG AM , 40 MG HS
     Route: 048

REACTIONS (16)
  - ARTHRALGIA [None]
  - DEPRESSION [None]
  - INSOMNIA [None]
  - ANAEMIA [None]
  - PERINEAL LACERATION [None]
  - OEDEMA [None]
  - GESTATIONAL HYPERTENSION [None]
  - COLITIS ULCERATIVE [None]
  - BLOOD CHOLESTEROL INCREASED [None]
  - COLITIS [None]
  - RECTAL HAEMORRHAGE [None]
  - INFLAMMATORY BOWEL DISEASE [None]
  - ACNE [None]
  - ANXIETY [None]
  - POSTPARTUM HAEMORRHAGE [None]
  - BLOOD TRIGLYCERIDES INCREASED [None]
